FAERS Safety Report 5823232-4 (Version None)
Quarter: 2008Q3

REPORT INFORMATION
  Report Type: 
  Country: None (occurrence: None)
  Receive Date: 20080725
  Receipt Date: 20080102
  Transmission Date: 20090109
  Serious: No
  Sender: FDA-Public Use
  Company Number: A0701009A

PATIENT
  Sex: Female

DRUGS (2)
  1. TRIAMTERENE AND HYDROCHLOROTHIAZIDE [Suspect]
     Route: 048
  2. NO CONCURRENT MEDICATION [Concomitant]

REACTIONS (2)
  - DIZZINESS [None]
  - NAUSEA [None]
